FAERS Safety Report 20216313 (Version 1)
Quarter: 2021Q4

REPORT INFORMATION
  Report Type: Spontaneous
  Country: US (occurrence: None)
  Receive Date: 20211221
  Receipt Date: 20211221
  Transmission Date: 20220303
  Serious: Yes (Other)
  Sender: FDA-Public Use
  Company Number: None

PATIENT
  Age: 88 Year
  Sex: Male
  Weight: 61.2 kg

DRUGS (8)
  1. LORBRENA [Suspect]
     Active Substance: LORLATINIB
     Indication: Lung neoplasm malignant
     Dosage: FREQUENCY : DAILY;?
     Route: 048
     Dates: start: 20211203
  2. FINASTERIDE [Concomitant]
     Active Substance: FINASTERIDE
  3. KLOR-CON [Concomitant]
     Active Substance: POTASSIUM CHLORIDE
  4. METOPROLOL [Concomitant]
     Active Substance: METOPROLOL
  5. RAPAFLO [Concomitant]
     Active Substance: SILODOSIN
  6. SENNA [Concomitant]
     Active Substance: SENNA LEAF\SENNOSIDES\SENNOSIDES A AND B
  7. TORSEMIDE [Concomitant]
     Active Substance: TORSEMIDE
  8. XARELTO [Concomitant]
     Active Substance: RIVAROXABAN

REACTIONS (1)
  - Cardiac failure congestive [None]

NARRATIVE: CASE EVENT DATE: 20211221
